FAERS Safety Report 25075520 (Version 3)
Quarter: 2025Q2

REPORT INFORMATION
  Report Type: Spontaneous
  Country: AT (occurrence: AT)
  Receive Date: 20250313
  Receipt Date: 20250515
  Transmission Date: 20250717
  Serious: Yes (Other)
  Sender: ABBVIE
  Company Number: AT-ABBVIE-6134122

PATIENT
  Age: 62 Year
  Sex: Female

DRUGS (5)
  1. ELAHERE [Suspect]
     Active Substance: MIRVETUXIMAB SORAVTANSINE-GYNX
     Indication: Ovarian cancer
     Route: 042
     Dates: start: 20250205
  2. ELAHERE [Suspect]
     Active Substance: MIRVETUXIMAB SORAVTANSINE-GYNX
     Indication: Ovarian cancer
     Route: 042
  3. ELAHERE [Suspect]
     Active Substance: MIRVETUXIMAB SORAVTANSINE-GYNX
     Indication: Ovarian cancer
     Route: 042
     Dates: start: 20250226
  4. ELAHERE [Suspect]
     Active Substance: MIRVETUXIMAB SORAVTANSINE-GYNX
     Indication: Ovarian cancer
     Route: 042
  5. EMEND [Concomitant]
     Active Substance: APREPITANT
     Indication: Product used for unknown indication

REACTIONS (6)
  - Blood pressure increased [Recovered/Resolved]
  - Off label use [Unknown]
  - Suture insertion [Recovered/Resolved]
  - Visual impairment [Recovered/Resolved]
  - Drug intolerance [Unknown]
  - Keratopathy [Unknown]

NARRATIVE: CASE EVENT DATE: 20250201
